FAERS Safety Report 10794426 (Version 1)
Quarter: 2015Q1

REPORT INFORMATION
  Report Type: Spontaneous
  Country: IT (occurrence: IT)
  Receive Date: 20150213
  Receipt Date: 20150213
  Transmission Date: 20150721
  Serious: Yes (Other)
  Sender: FDA-Public Use
  Company Number: IT-IMPAX LABORATORIES, INC-2015-IPXL-00130

PATIENT
  Age: 60 Year
  Sex: Female

DRUGS (2)
  1. ANAGRELIDE HYDROCHLORIDE. [Suspect]
     Active Substance: ANAGRELIDE HYDROCHLORIDE
     Indication: ESSENTIAL THROMBOCYTHAEMIA
     Dosage: 3 MG, DAILY
     Route: 065
     Dates: start: 201003, end: 201111
  2. ANAGRELIDE HYDROCHLORIDE. [Suspect]
     Active Substance: ANAGRELIDE HYDROCHLORIDE
     Dosage: 1 MG, DAILY
     Route: 065
     Dates: start: 201111, end: 201201

REACTIONS (2)
  - Thrombocytopenia [Unknown]
  - Chronic myeloid leukaemia [Unknown]
